FAERS Safety Report 5340684-7 (Version None)
Quarter: 2007Q2

REPORT INFORMATION
  Report Type: 
  Country: None (occurrence: None)
  Receive Date: 20070531
  Receipt Date: 20070521
  Transmission Date: 20071010
  Serious: Yes (Other)
  Sender: FDA-Public Use
  Company Number: BR-PFIZER INC-2007041990

PATIENT
  Sex: Male
  Weight: 61 kg

DRUGS (10)
  1. XALACOM [Suspect]
     Indication: GLAUCOMA
     Dosage: TEXT:1 DROP IN EACH EYE DAILY
     Route: 047
  2. XALATAN [Suspect]
  3. WARFARIN SODIUM [Concomitant]
     Route: 048
  4. CAPTOPRIL [Concomitant]
  5. HYDROCHLOROTHIAZIDE [Concomitant]
     Dosage: DAILY DOSE:25MG
  6. ATENSINA [Concomitant]
  7. SIMVASTATIN [Concomitant]
     Dosage: DAILY DOSE:20MG
  8. BRIMONIDINE TARTRATE [Concomitant]
     Route: 047
  9. GLYBURIDE [Concomitant]
     Route: 048
  10. GLUCOBAY [Concomitant]
     Route: 048

REACTIONS (5)
  - BLINDNESS [None]
  - DRUG INEFFECTIVE [None]
  - INTRAOCULAR PRESSURE INCREASED [None]
  - MEDICATION ERROR [None]
  - SURGERY [None]
